FAERS Safety Report 4588648-5 (Version None)
Quarter: 2005Q1

REPORT INFORMATION
  Report Type: 
  Country: None (occurrence: None)
  Receive Date: 20050222
  Receipt Date: 20041209
  Transmission Date: 20050727
  Serious: Yes (Other)
  Sender: FDA-Public Use
  Company Number: PHNR2004AU01714

PATIENT
  Age: 34 Year
  Sex: Male

DRUGS (2)
  1. CLOZARIL [Suspect]
     Indication: SCHIZOPHRENIA
     Dosage: 75 - 250 MG/DAY
     Route: 048
     Dates: start: 20010906, end: 20040101
  2. CLOZARIL [Suspect]
     Dosage: 100 MG/DAY
     Route: 048
     Dates: start: 20040101, end: 20041206

REACTIONS (4)
  - ALCOHOL USE [None]
  - BLOOD CHOLESTEROL INCREASED [None]
  - BLOOD GLUCOSE INCREASED [None]
  - LIVER FUNCTION TEST ABNORMAL [None]
